FAERS Safety Report 18616839 (Version 2)
Quarter: 2021Q1

REPORT INFORMATION
  Report Type: Spontaneous
  Country: US (occurrence: US)
  Receive Date: 20201215
  Receipt Date: 20210317
  Transmission Date: 20210419
  Serious: Yes (Disabling)
  Sender: FDA-Public Use
  Company Number: US-TEVA-2020-US-1857632

PATIENT
  Age: 61 Year
  Sex: Female
  Weight: 68.94 kg

DRUGS (8)
  1. DOCETAXEL. [Suspect]
     Active Substance: DOCETAXEL
     Indication: BREAST CANCER FEMALE
     Dosage: DOSAGE: 101MG, NUMBER OF CYCLES: 05, FREQUENCY: EVERY THREE WEEKS
     Route: 065
     Dates: start: 20150715, end: 20151105
  2. DOXORUBICIN [Concomitant]
     Active Substance: DOXORUBICIN
     Indication: BREAST CANCER FEMALE
     Dosage: DOSAGE: 101MG, NUMBER OF CYCLES: 05, FREQUENCY: EVERY THREE WEEKS
     Route: 065
     Dates: start: 20150615, end: 20160302
  3. CYCLOPHOSPHAMIDE. [Concomitant]
     Active Substance: CYCLOPHOSPHAMIDE
     Indication: BREAST CANCER FEMALE
     Dosage: DOSAGE: 101MG, NUMBER OF CYCLES: 05, FREQUENCY: EVERY THREE WEEKS
     Route: 065
     Dates: start: 20150615, end: 20160302
  4. ATORVASTATIN [Concomitant]
     Active Substance: ATORVASTATIN
     Route: 065
     Dates: start: 2015
  5. NEULASTA [Concomitant]
     Active Substance: PEGFILGRASTIM
     Indication: BREAST CANCER FEMALE
     Dosage: DOSAGE: 101MG, NUMBER OF CYCLES: 05, FREQUENCY: EVERY THREE WEEKS
     Route: 065
     Dates: start: 20150615, end: 20160302
  6. LEVOTHYROXINE. [Concomitant]
     Active Substance: LEVOTHYROXINE
     Route: 065
     Dates: start: 2015
  7. ANASTROZOLE. [Concomitant]
     Active Substance: ANASTROZOLE
     Route: 065
     Dates: start: 2015
  8. LOSARTAN. [Concomitant]
     Active Substance: LOSARTAN
     Route: 065
     Dates: start: 2015

REACTIONS (4)
  - Alopecia areata [Not Recovered/Not Resolved]
  - Hair texture abnormal [Not Recovered/Not Resolved]
  - Hair colour changes [Not Recovered/Not Resolved]
  - Madarosis [Not Recovered/Not Resolved]

NARRATIVE: CASE EVENT DATE: 201605
